FAERS Safety Report 7209086-2 (Version None)
Quarter: 2010Q4

REPORT INFORMATION
  Report Type: 
  Country: None (occurrence: None)
  Receive Date: 20101222
  Receipt Date: 20101209
  Transmission Date: 20110411
  Serious: Yes (Hospitalization, Other)
  Sender: FDA-Public Use
  Company Number: UK-ACCORD-002080

PATIENT
  Age: 54 Year
  Sex: Male

DRUGS (10)
  1. SIMVASTATIN [Suspect]
     Indication: PRODUCT USED FOR UNKNOWN INDICATION
     Dosage: 40.00-MG-24.0HOURS
  2. RISPERIDONE [Suspect]
     Indication: PSYCHOTIC DISORDER
     Dosage: 1.00-MG-24.0HOURS
  3. CYCLOSPORINE [Suspect]
     Indication: PROPHYLAXIS AGAINST GRAFT VERSUS HOST DISEASE
     Dosage: 0.50-MG-12.0HOURS INTRAVENOUS
     Route: 042
  4. BUSULFAN(BUSULFAN) [Concomitant]
  5. FLUDARABINE PHOSPHATE [Concomitant]
  6. METHOTREXATE [Concomitant]
  7. ENALAPRIL MALEATE [Concomitant]
  8. ATENOLOL [Concomitant]
  9. MEROPENEM [Concomitant]
  10. TEICOPLANIN(TEICOPLANIN) [Concomitant]

REACTIONS (7)
  - DRUG INTERACTION [None]
  - HALLUCINATIONS, MIXED [None]
  - NEUROTOXICITY [None]
  - PYREXIA [None]
  - RENAL FAILURE [None]
  - RHABDOMYOLYSIS [None]
  - STOMATITIS [None]
